FAERS Safety Report 16195882 (Version 1)
Quarter: 2019Q2

REPORT INFORMATION
  Report Type: Spontaneous
  Country: US (occurrence: US)
  Receive Date: 20190415
  Receipt Date: 20190415
  Transmission Date: 20190711
  Serious: No
  Sender: FDA-Public Use
  Company Number: US-TEVA-2019-US-1037835

PATIENT
  Age: 81 Year
  Sex: Female

DRUGS (2)
  1. RISEDRONATE SODIUM TABLETS, USP [Suspect]
     Active Substance: RISEDRONATE SODIUM
     Route: 065
     Dates: start: 20190407
  2. RISEDRONATE SODIUM TABLETS, USP [Suspect]
     Active Substance: RISEDRONATE SODIUM
     Indication: OSTEOPOROSIS
     Route: 065
     Dates: start: 2017

REACTIONS (2)
  - Product use issue [Unknown]
  - Diarrhoea [Unknown]

NARRATIVE: CASE EVENT DATE: 20190407
